FAERS Safety Report 4750406-6 (Version None)
Quarter: 2005Q3

REPORT INFORMATION
  Report Type: 
  Country: None (occurrence: None)
  Receive Date: 20050818
  Receipt Date: 20050808
  Transmission Date: 20060218
  Serious: Yes (Hospitalization, Other)
  Sender: FDA-Public Use
  Company Number: 216326

PATIENT
  Age: 67 Year
  Sex: Male
  Weight: 75 kg

DRUGS (6)
  1. MABTHERA (RITUXIMAB) CONC FOR SOLUTION FOR INFUSION, 100MG [Suspect]
     Indication: LYMPHOMA
     Dosage: 890 MG, INTRAVENOUS
     Route: 042
     Dates: start: 20050628
  2. CYCLOPHOSPHAMIDE [Concomitant]
  3. PREDNISONE [Concomitant]
  4. CHLORPHENAMINE (CHLORPHENAMINE MALEATE) [Concomitant]
  5. ACETAMINOPHEN [Concomitant]
  6. VINCRISTINE [Concomitant]

REACTIONS (4)
  - ANAPHYLACTIC REACTION [None]
  - ANGIONEUROTIC OEDEMA [None]
  - BRONCHOSPASM [None]
  - INFUSION RELATED REACTION [None]
